FAERS Safety Report 6191371-7 (Version None)
Quarter: 2009Q2

REPORT INFORMATION
  Report Type: 
  Country: None (occurrence: None)
  Receive Date: 20090515
  Receipt Date: 20070313
  Transmission Date: 20091009
  Serious: Yes (Hospitalization, Disabling)
  Sender: FDA-Public Use
  Company Number: US-ASTRAZENECA-2006UW08257

PATIENT
  Age: 21393 Day
  Sex: Female
  Weight: 90.7 kg

DRUGS (22)
  1. SEROQUEL [Suspect]
     Indication: BIPOLAR DISORDER
     Dosage: 25-150MG
     Route: 048
     Dates: start: 20021201
  2. COUMADIN [Concomitant]
     Dosage: 3-5 MG
     Route: 048
  3. DIGOXIN [Concomitant]
     Route: 048
  4. INSULIN [Concomitant]
     Dosage: 2-15 UNITS
     Route: 058
  5. LASIX [Concomitant]
     Dosage: 40MG/4ML
     Route: 051
  6. ATENOLOL [Concomitant]
     Dosage: 25-50MG
     Route: 048
  7. PRILOSEC [Concomitant]
     Route: 048
  8. MAVIK [Concomitant]
     Route: 065
  9. AMBIEN [Concomitant]
     Dosage: 5-10MG
     Route: 048
  10. ACCUPRIL [Concomitant]
     Dosage: 10-40MG
     Route: 048
  11. SINGULAIR [Concomitant]
     Route: 048
  12. TRILEPTAL [Concomitant]
     Route: 048
  13. DIOVAN [Concomitant]
     Route: 048
  14. GLYBURIDE [Concomitant]
     Route: 048
  15. PROZAC [Concomitant]
     Route: 048
  16. ZANTAC [Concomitant]
     Route: 065
  17. OXYCODONE [Concomitant]
     Route: 048
  18. NORVASC [Concomitant]
     Route: 065
  19. PLAVIX [Concomitant]
     Route: 048
  20. ASPIRIN [Concomitant]
     Route: 048
  21. LISINOPRIL [Concomitant]
     Route: 048
  22. PROTONIX [Concomitant]
     Route: 048

REACTIONS (32)
  - ANAEMIA [None]
  - ARTHRITIS [None]
  - CARDIAC FAILURE CONGESTIVE [None]
  - CARDIAC VALVE DISEASE [None]
  - CARDIOMEGALY [None]
  - CEREBRAL INFARCTION [None]
  - CEREBROVASCULAR ACCIDENT [None]
  - CHRONIC OBSTRUCTIVE PULMONARY DISEASE [None]
  - CONCUSSION [None]
  - DIZZINESS [None]
  - DYSURIA [None]
  - EXOSTOSIS [None]
  - HEMIANOPIA [None]
  - HYPERLIPIDAEMIA [None]
  - HYPERURICAEMIA [None]
  - ILL-DEFINED DISORDER [None]
  - INSOMNIA [None]
  - ISCHAEMIC CARDIOMYOPATHY [None]
  - MIGRAINE [None]
  - MITRAL VALVE DISEASE [None]
  - MITRAL VALVE INCOMPETENCE [None]
  - NASAL CONGESTION [None]
  - NAUSEA [None]
  - OEDEMA PERIPHERAL [None]
  - OSTEOARTHRITIS [None]
  - PAIN IN EXTREMITY [None]
  - PULMONARY CONGESTION [None]
  - PULMONARY OEDEMA [None]
  - RENAL FAILURE CHRONIC [None]
  - RESPIRATORY ARREST [None]
  - SPINAL OSTEOARTHRITIS [None]
  - URINARY TRACT INFECTION [None]
